FAERS Safety Report 7420255-9 (Version None)
Quarter: 2011Q2

REPORT INFORMATION
  Report Type: 
  Country: None (occurrence: None)
  Receive Date: 20110407
  Receipt Date: 20110331
  Transmission Date: 20111010
  Serious: Yes (Other)
  Sender: FDA-Public Use
  Company Number: 2010SP042772

PATIENT
  Age: 13 Year
  Sex: Female
  Weight: 41.4 kg

DRUGS (6)
  1. MONTELUKAST SODIUM [Suspect]
     Indication: ASTHMA
     Dosage: 10 MG; QD; PO
     Route: 048
     Dates: start: 20080913, end: 20100707
  2. CLARITIN REDITABS [Suspect]
     Indication: DERMATITIS ATOPIC
     Dosage: 10 MG; QD; PO, 10 MG; QD; PO
     Route: 048
     Dates: start: 20070207, end: 20090526
  3. CLARITIN REDITABS [Suspect]
     Indication: DERMATITIS ATOPIC
     Dosage: 10 MG; QD; PO, 10 MG; QD; PO
     Route: 048
     Dates: start: 20100419, end: 20100707
  4. ALESION (EPINASTINE HYDROCHLORIDE) [Suspect]
     Indication: DERMATITIS ATOPIC
     Dosage: 10 MG; QD; PO, 10 MG; QD; PO
     Route: 048
     Dates: start: 20050507, end: 20080403
  5. ALESION (EPINASTINE HYDROCHLORIDE) [Suspect]
     Indication: DERMATITIS ATOPIC
     Dosage: 10 MG; QD; PO, 10 MG; QD; PO
     Route: 048
     Dates: start: 20090527, end: 20100707
  6. SAIBOKU-TO (SAIBOKU-TO) [Suspect]
     Indication: ASTHMA
     Dosage: 5 GM; BID; PO
     Route: 048
     Dates: start: 20050423, end: 20100707

REACTIONS (2)
  - ALLERGIC CYSTITIS [None]
  - WITHDRAWAL SYNDROME [None]
